FAERS Safety Report 17201580 (Version 1)
Quarter: 2019Q4

REPORT INFORMATION
  Report Type: Spontaneous
  Country: CA (occurrence: CA)
  Receive Date: 20191220
  Receipt Date: 20191220
  Transmission Date: 20200122
  Serious: Yes (Disabling)
  Sender: FDA-Public Use
  Company Number: None

PATIENT
  Age: 58 Year
  Sex: Female

DRUGS (1)
  1. UDREAM [Suspect]
     Active Substance: HERBALS
     Indication: SLEEP DISORDER
     Dosage: ?          QUANTITY:1 CAPSULE(S);?
     Route: 048
     Dates: start: 20190611, end: 20191010

REACTIONS (8)
  - Malaise [None]
  - Feeling abnormal [None]
  - Dizziness [None]
  - Drug dependence [None]
  - Insomnia [None]
  - Judgement impaired [None]
  - Mood swings [None]
  - Impaired driving ability [None]

NARRATIVE: CASE EVENT DATE: 20190715
